FAERS Safety Report 8200446-X (Version None)
Quarter: 2012Q1

REPORT INFORMATION
  Report Type: 
  Country: None (occurrence: None)
  Receive Date: 20120309
  Receipt Date: 20120309
  Transmission Date: 20120608
  Serious: Yes (Other)
  Sender: FDA-Public Use
  Company Number: None

PATIENT
  Age: 32 Year
  Sex: Female
  Weight: 62.3 kg

DRUGS (2)
  1. HYDROMORPHONE HCL [Suspect]
     Indication: PAIN
     Dosage: 0.5 MG ONCE IV
     Route: 042
     Dates: start: 20111213, end: 20111213
  2. ONDANSETRON [Concomitant]

REACTIONS (1)
  - CONVULSION [None]
